FAERS Safety Report 6167839-6 (Version None)
Quarter: 2009Q2

REPORT INFORMATION
  Report Type: 
  Country: None (occurrence: None)
  Receive Date: 20090423
  Receipt Date: 20090409
  Transmission Date: 20091009
  Serious: Yes (Death, Hospitalization)
  Sender: FDA-Public Use
  Company Number: 2009FR0010

PATIENT
  Sex: Male

DRUGS (1)
  1. ORFADIN [Suspect]
     Dosage: ORAL
     Route: 048

REACTIONS (5)
  - ACUTE HEPATIC FAILURE [None]
  - COMPLICATIONS OF TRANSPLANTED LIVER [None]
  - HAEMORRHAGE [None]
  - HEPATIC NEOPLASM MALIGNANT [None]
  - LIVER TRANSPLANT [None]
